FAERS Safety Report 7016108-0 (Version None)
Quarter: 2010Q3

REPORT INFORMATION
  Report Type: 
  Country: None (occurrence: None)
  Receive Date: 20100923
  Receipt Date: 20100913
  Transmission Date: 20110219
  Serious: Yes (Other)
  Sender: FDA-Public Use
  Company Number: 2010SP048765

PATIENT
  Sex: Female

DRUGS (1)
  1. NUVARING [Suspect]
     Indication: CONTRACEPTION
     Dates: end: 20100915

REACTIONS (6)
  - DEPRESSION [None]
  - FACE OEDEMA [None]
  - IRRITABILITY [None]
  - MOOD SWINGS [None]
  - OEDEMA PERIPHERAL [None]
  - WEIGHT INCREASED [None]
